FAERS Safety Report 8661973 (Version 2)
Quarter: 2012Q4

REPORT INFORMATION
  Report Type: 
  Country: FR (occurrence: FR)
  Receive Date: 20120712
  Receipt Date: 20120927
  Transmission Date: 20130627
  Serious: Yes (Hospitalization)
  Sender: FDA-Public Use
  Company Number: FR-ASTRAZENECA-2012SE45798

PATIENT
  Age: 69 Year
  Sex: Female

DRUGS (10)
  1. MERONEM [Suspect]
     Route: 042
     Dates: start: 20120409, end: 20120430
  2. PARACETAMOL [Suspect]
     Route: 065
     Dates: start: 20120409
  3. PHENYTOIN [Suspect]
     Indication: CONVULSION PROPHYLAXIS
     Route: 065
     Dates: start: 20120409, end: 20120515
  4. ZYVOXID [Suspect]
     Route: 065
     Dates: start: 20120409, end: 20120430
  5. FOSFOMYCIN [Suspect]
     Route: 065
     Dates: start: 20120406
  6. CLAFORAN [Suspect]
     Route: 065
     Dates: start: 20120406
  7. ACUPAN [Suspect]
     Route: 065
     Dates: start: 20120409
  8. LOVENOX [Concomitant]
     Dosage: 0.4 / DAY
     Dates: start: 20120409
  9. KEPPRA [Concomitant]
     Dates: start: 20120514, end: 20120515
  10. DIFFU K [Concomitant]
     Dates: start: 20120409

REACTIONS (15)
  - Drug reaction with eosinophilia and systemic symptoms [Recovered/Resolved]
  - Stevens-Johnson syndrome [Recovered/Resolved]
  - Pigmentation disorder [None]
  - Cholestasis [None]
  - Hemiparesis [None]
  - Haemoglobin decreased [None]
  - Liver disorder [None]
  - Toxic skin eruption [None]
  - Klebsiella test positive [None]
  - Pathogen resistance [None]
  - Staphylococcus test positive [None]
  - Subdural haematoma [None]
  - Subcutaneous abscess [None]
  - Empyema [None]
  - Fibrosis [None]
